FAERS Safety Report 20472314 (Version 2)
Quarter: 2022Q1

REPORT INFORMATION
  Report Type: Other
  Country: GB (occurrence: GB)
  Receive Date: 20220215
  Receipt Date: 20220224
  Transmission Date: 20220424
  Serious: Yes (Disabling)
  Sender: FDA-Public Use
  Company Number: None

PATIENT
  Age: 68 Year
  Sex: Female
  Weight: 76 kg

DRUGS (27)
  1. GABAPENTIN [Suspect]
     Active Substance: GABAPENTIN
     Indication: Product used for unknown indication
     Dosage: 100 MILLIGRAM, FORTNIGHTLY (EVERY TWO WEEKS)
     Route: 065
  2. GABAPENTIN [Suspect]
     Active Substance: GABAPENTIN
     Dosage: 100 MILLIGRAM, TID, DOSE INCREASED
     Route: 065
  3. GABAPENTIN [Suspect]
     Active Substance: GABAPENTIN
     Dosage: 300 MILLIGRAM, TID (THRICE DAILY), DOSE INCREASED
     Route: 065
     Dates: start: 20211111
  4. AMOXICILLIN [Concomitant]
     Active Substance: AMOXICILLIN
     Indication: Product used for unknown indication
     Dosage: 3 DOSAGE FORM, PER DAY
     Route: 065
     Dates: start: 20220110, end: 20220117
  5. ATORVASTATIN [Concomitant]
     Active Substance: ATORVASTATIN
     Indication: Product used for unknown indication
     Dosage: 1 DOSAGE  FORM, PER DAY
     Route: 065
     Dates: start: 20210713
  6. BUNOV [Concomitant]
     Indication: Product used for unknown indication
     Dosage: 1 DOSAGE FORM, ONCE A WEEK, TO NON-IRRITATE
     Route: 065
     Dates: start: 20211119, end: 20211217
  7. CALCEOS [Concomitant]
     Active Substance: CALCIUM CARBONATE\CHOLECALCIFEROL
     Indication: Product used for unknown indication
     Dosage: 2 DOSAGE FORM, PER DAY
     Route: 065
     Dates: start: 20210713
  8. CETIRIZINE [Concomitant]
     Active Substance: CETIRIZINE HYDROCHLORIDE
     Indication: Product used for unknown indication
     Dosage: 1 DOSAGE FORM, 1 UNK
     Route: 065
     Dates: start: 20210713, end: 20211111
  9. CODEINE PHOSPHATE [Concomitant]
     Active Substance: CODEINE PHOSPHATE
     Indication: Pain
     Dosage: 1 DOSAGE FORM, PRN (AS NEEDED), UP TO FOUR TIMES DAILY
     Route: 065
  10. DERMACOOL [Concomitant]
     Indication: Product used for unknown indication
     Dosage: UNK UNK, PRN (AS REQUIRED)
     Route: 065
     Dates: start: 20210713
  11. DIAZEPAM [Concomitant]
     Active Substance: DIAZEPAM
     Indication: Product used for unknown indication
     Dosage: 4 DOSAGE FORM PER DAY
     Route: 065
     Dates: start: 20210713
  12. HYDROCORTISONE [Concomitant]
     Active Substance: HYDROCORTISONE
     Indication: Product used for unknown indication
     Dosage: UNK, TO BE APPLIED THINLY TO THE AFFECTED AREA(S) ON
     Route: 065
     Dates: start: 20211130, end: 20211228
  13. LEVOTHYROXINE [Concomitant]
     Active Substance: LEVOTHYROXINE
     Indication: Product used for unknown indication
     Dosage: 1 DOSAGE FORM, EVERY MORNING, PER DAY
     Route: 065
     Dates: start: 20210713
  14. MAGNESIUM HYDROXIDE [Concomitant]
     Active Substance: MAGNESIUM HYDROXIDE
     Indication: Product used for unknown indication
     Dosage: 15 MILLILITER, UNK, UP TO 3 TIMES A DAY
     Route: 065
     Dates: start: 20210713
  15. MONTELUKAST [Concomitant]
     Active Substance: MONTELUKAST SODIUM
     Indication: Product used for unknown indication
     Dosage: 1 DOSAGE FORM, AT BED TIME (AT NIGHT), PER DAY
     Route: 065
     Dates: start: 20210713
  16. OMEPRAZOLE [Concomitant]
     Active Substance: OMEPRAZOLE
     Indication: Product used for unknown indication
     Dosage: 2 DOSAGE FORM, PER DAY
     Route: 065
     Dates: start: 20210713
  17. ACETAMINOPHEN [Concomitant]
     Active Substance: ACETAMINOPHEN
     Indication: Product used for unknown indication
     Dosage: 8 DOSAGE FORM, PER DAY
     Route: 065
     Dates: start: 20211021
  18. PHYLLOCONTIN [Concomitant]
     Active Substance: AMINOPHYLLINE
     Indication: Product used for unknown indication
     Dosage: 2 DOSAGE FORM, PER DAY
     Route: 065
     Dates: start: 20210713, end: 20220104
  19. PREDNISOLONE [Concomitant]
     Active Substance: PREDNISOLONE
     Indication: Product used for unknown indication
     Dosage: 5 DOSAGE FORM, PER DAY
     Route: 065
     Dates: start: 20220110, end: 20220115
  20. PREGABALIN [Concomitant]
     Active Substance: PREGABALIN
     Indication: Product used for unknown indication
     Dosage: 2 DOSAGE FORM, PER DAY
     Route: 065
  21. PROCHLORPERAZINE [Concomitant]
     Active Substance: PROCHLORPERAZINE
     Indication: Product used for unknown indication
     Dosage: UNK BID, ONE OR TWO TABLETS TWICE DAILY.
     Route: 065
     Dates: start: 20210713
  22. ALBUTEROL [Concomitant]
     Active Substance: ALBUTEROL
     Indication: Product used for unknown indication
     Dosage: 1 DOSAGE FORM, INHALE 1 DOSE 3-4 TIMES/DAY
     Route: 055
     Dates: start: 20210713
  23. TRELEGY ELLIPTA [Concomitant]
     Active Substance: FLUTICASONE FUROATE\UMECLIDINIUM BROMIDE\VILANTEROL TRIFENATATE
     Indication: Product used for unknown indication
     Dosage: 1 DOSAGE FORM, PER DAY, INHALATION
     Route: 055
     Dates: start: 20210713
  24. THEOPHYLLINE ANHYDROUS [Concomitant]
     Active Substance: THEOPHYLLINE ANHYDROUS
     Indication: Product used for unknown indication
     Dosage: 1 DOSAGE FORM, EVERY 12 HRS
     Route: 065
     Dates: start: 20220104, end: 20220112
  25. VENLAFAXINE [Concomitant]
     Active Substance: VENLAFAXINE HYDROCHLORIDE
     Indication: Product used for unknown indication
     Dosage: 2 DOSAGE FORM, PER DAY
     Route: 065
     Dates: start: 20210713
  26. ALBUTEROL SULFATE [Concomitant]
     Active Substance: ALBUTEROL SULFATE
     Indication: Product used for unknown indication
     Dosage: UNK, ONE OR TWO PUFFS TO BE INHALED UP TO FOUR TIMES
     Dates: start: 20210713
  27. ZOPICLONE [Concomitant]
     Active Substance: ZOPICLONE
     Indication: Product used for unknown indication
     Dosage: 1 DOSAGE FORM, AT BED TIME (AT NIGHT), PER DAY
     Route: 065
     Dates: start: 20210713

REACTIONS (2)
  - Urinary incontinence [Recovered/Resolved]
  - Micturition urgency [Recovered/Resolved]

NARRATIVE: CASE EVENT DATE: 20220129
